FAERS Safety Report 8796517 (Version 1)
Quarter: 2012Q4

REPORT INFORMATION
  Report Type: 
  Country: US (occurrence: US)
  Receive Date: 20120920
  Receipt Date: 20120920
  Transmission Date: 20130627
  Serious: Yes (Congenital Anomaly, Other)
  Sender: FDA-Public Use
  Company Number: US-PFIZER INC-2012232387

PATIENT
  Sex: Female

DRUGS (1)
  1. SERTRALINE HCL [Suspect]
     Dosage: UNK
     Route: 064

REACTIONS (4)
  - Maternal exposure timing unspecified [Unknown]
  - Talipes [Unknown]
  - Patent ductus arteriosus [Unknown]
  - Congenital pulmonary hypertension [Unknown]
